FAERS Safety Report 16877062 (Version 2)
Quarter: 2019Q4

REPORT INFORMATION
  Report Type: Report from Study
  Country: NL (occurrence: NL)
  Receive Date: 20191002
  Receipt Date: 20191018
  Transmission Date: 20200122
  Serious: Yes (Death)
  Sender: FDA-Public Use
  Company Number: PHHY2019NL227248

PATIENT
  Sex: Female
  Weight: 71 kg

DRUGS (4)
  1. ZOMETA [Suspect]
     Active Substance: ZOLEDRONIC ACID
     Indication: BREAST CANCER METASTATIC
     Dosage: 1 DF, (ONCE EVERY 26 WEEKS)
     Route: 042
  2. ZOMETA [Suspect]
     Active Substance: ZOLEDRONIC ACID
     Dosage: 1 DF, (ONCE EVERY 26 WEEKS)
     Route: 042
     Dates: start: 20110825
  3. ZOMETA [Suspect]
     Active Substance: ZOLEDRONIC ACID
     Dosage: 1 DF, (ONCE EVERY 26 WEEKS)
     Route: 042
     Dates: start: 20190319
  4. ZOMETA [Suspect]
     Active Substance: ZOLEDRONIC ACID
     Dosage: 1 DF, (ONCE EVERY 26 WEEKS)
     Route: 042
     Dates: start: 201802

REACTIONS (3)
  - Inappropriate schedule of product administration [Unknown]
  - Breast cancer metastatic [Fatal]
  - Malignant neoplasm progression [Fatal]
